FAERS Safety Report 4554074-8 (Version None)
Quarter: 2005Q1

REPORT INFORMATION
  Report Type: 
  Country: None (occurrence: None)
  Receive Date: 20050118
  Receipt Date: 20041216
  Transmission Date: 20050727
  Serious: Yes (Hospitalization)
  Sender: FDA-Public Use
  Company Number: GB-MERCK-0412USA02116

PATIENT
  Age: 54 Year
  Sex: Female

DRUGS (1)
  1. PRINIVIL [Suspect]
     Indication: VENTRICULAR DYSFUNCTION
     Route: 048

REACTIONS (3)
  - COUGH [None]
  - POSTOPERATIVE WOUND COMPLICATION [None]
  - WOUND DEHISCENCE [None]
